FAERS Safety Report 7366774-5 (Version None)
Quarter: 2011Q1

REPORT INFORMATION
  Report Type: 
  Country: None (occurrence: None)
  Receive Date: 20110322
  Receipt Date: 20110317
  Transmission Date: 20110831
  Serious: Yes (Other)
  Sender: FDA-Public Use
  Company Number: US-PFIZER INC-2011059153

PATIENT
  Sex: Female
  Weight: 73 kg

DRUGS (1)
  1. XALATAN [Suspect]
     Indication: INTRAOCULAR PRESSURE INCREASED
     Dosage: ONE DROP, 1X/DAY, IN EACH EYE
     Route: 047
     Dates: start: 20091201

REACTIONS (1)
  - INTRAOCULAR PRESSURE INCREASED [None]
